FAERS Safety Report 5368729-9 (Version None)
Quarter: 2007Q2

REPORT INFORMATION
  Report Type: 
  Country: None (occurrence: None)
  Receive Date: 20070625
  Receipt Date: 20070508
  Transmission Date: 20071010
  Serious: No
  Sender: FDA-Public Use
  Company Number: US-BRISTOL-MYERS SQUIBB COMPANY-13772405

PATIENT
  Age: 64 Year
  Sex: Female
  Weight: 91 kg

DRUGS (12)
  1. ORENCIA [Suspect]
     Indication: RHEUMATOID ARTHRITIS
     Route: 042
     Dates: start: 20070420, end: 20070420
  2. PREDNISONE TAB [Concomitant]
  3. IBUPROFEN [Concomitant]
  4. RELAFEN [Concomitant]
  5. KLOR-CON [Concomitant]
  6. FUROSEMIDE [Concomitant]
  7. LIPITOR [Concomitant]
  8. PREMPRO [Concomitant]
  9. ATROVENT [Concomitant]
  10. PROVENTIL-HFA [Concomitant]
  11. PREVACID [Concomitant]
  12. BENAZEPRIL HCL [Concomitant]

REACTIONS (2)
  - DRUG INEFFECTIVE [None]
  - DYSPNOEA [None]
